FAERS Safety Report 6696520-X (Version None)
Quarter: 2010Q2

REPORT INFORMATION
  Report Type: 
  Country: None (occurrence: None)
  Receive Date: 20100422
  Receipt Date: 20100408
  Transmission Date: 20101027
  Serious: Yes (Death, Other)
  Sender: FDA-Public Use
  Company Number: 2010-1132

PATIENT
  Sex: Male

DRUGS (1)
  1. SOMATULINE AUTOFEL 120 MG (LANREOTIDE AUTOGEL) (LANREOTIDE)LANREOTIDE [Suspect]
     Indication: ACROMEGALY
     Dosage: 120 MG
     Dates: start: 20070501, end: 20091001

REACTIONS (2)
  - MYOCARDIAL INFARCTION [None]
  - PROSTATE CANCER [None]
